FAERS Safety Report 20797122 (Version 1)
Quarter: 2022Q2

REPORT INFORMATION
  Report Type: Spontaneous
  Country: US (occurrence: US)
  Receive Date: 20220506
  Receipt Date: 20220506
  Transmission Date: 20220721
  Serious: No
  Sender: FDA-Public Use
  Company Number: US-BRISTOL-MYERS SQUIBB COMPANY-2022-026559

PATIENT
  Sex: Female
  Weight: 61.23 kg

DRUGS (2)
  1. POMALYST [Suspect]
     Active Substance: POMALIDOMIDE
     Indication: Plasma cell myeloma
     Route: 048
     Dates: start: 2019
  2. POMALYST [Suspect]
     Active Substance: POMALIDOMIDE
     Route: 048
     Dates: start: 20210705

REACTIONS (6)
  - White blood cell count decreased [Unknown]
  - Asthenia [Unknown]
  - Memory impairment [Unknown]
  - Hypersensitivity [Unknown]
  - Gait disturbance [Unknown]
  - Pain [Unknown]
